FAERS Safety Report 10557306 (Version 1)
Quarter: 2014Q4

REPORT INFORMATION
  Report Type: Spontaneous
  Country: DE (occurrence: DE)
  Receive Date: 20141031
  Receipt Date: 20141031
  Transmission Date: 20150529
  Serious: Yes (Hospitalization)
  Sender: FDA-Public Use
  Company Number: GXKR2014DE004011

PATIENT
  Age: 10 Year
  Sex: Male

DRUGS (1)
  1. AMOXIHEXAL [Suspect]
     Active Substance: AMOXICILLIN
     Indication: TONSILLITIS
     Route: 048

REACTIONS (2)
  - Rash [Unknown]
  - Blister [Unknown]
